FAERS Safety Report 10044891 (Version 1)
Quarter: 2014Q1

REPORT INFORMATION
  Report Type: Spontaneous
  Country: US (occurrence: US)
  Receive Date: 20140328
  Receipt Date: 20140328
  Transmission Date: 20141002
  Serious: Yes (Hospitalization)
  Sender: FDA-Public Use
  Company Number: US-GLAXOSMITHKLINE-A1066108A

PATIENT
  Age: 41 Year
  Sex: Female

DRUGS (5)
  1. ADVAIR HFA [Suspect]
     Indication: CHRONIC OBSTRUCTIVE PULMONARY DISEASE
     Dosage: 2PUFF TWICE PER DAY
     Route: 055
     Dates: start: 201306
  2. PRO-AIR [Concomitant]
  3. CITALOPRAM [Concomitant]
  4. PROPANOLOL [Concomitant]
  5. CLONAZEPAM [Concomitant]

REACTIONS (5)
  - Hypopnoea [Not Recovered/Not Resolved]
  - Dyspnoea [Not Recovered/Not Resolved]
  - Chest discomfort [Not Recovered/Not Resolved]
  - Elective surgery [Unknown]
  - Treatment noncompliance [Not Recovered/Not Resolved]
